FAERS Safety Report 8521128-0 (Version None)
Quarter: 2012Q3

REPORT INFORMATION
  Report Type: 
  Country: None (occurrence: None)
  Receive Date: 20120719
  Receipt Date: 20120716
  Transmission Date: 20120928
  Serious: Yes (Death)
  Sender: FDA-Public Use
  Company Number: US-ELI_LILLY_AND_COMPANY-US201207004676

PATIENT
  Sex: Female

DRUGS (4)
  1. FORTEO [Suspect]
     Indication: OSTEOPOROSIS
     Dosage: 20 UG, QD
  2. COUMADIN [Concomitant]
  3. CALCIUM W/VITAMIN D NOS [Concomitant]
  4. NAPROSYN [Concomitant]

REACTIONS (11)
  - GENERAL PHYSICAL HEALTH DETERIORATION [None]
  - GASTROOESOPHAGEAL REFLUX DISEASE [None]
  - DYSPHAGIA [None]
  - PNEUMONIA ASPIRATION [None]
  - PNEUMONIA [None]
  - CHOKING [None]
  - COUGH [None]
  - GAIT DISTURBANCE [None]
  - DEATH [None]
  - DYSSTASIA [None]
  - BACK PAIN [None]
